FAERS Safety Report 22781253 (Version 4)
Quarter: 2023Q4

REPORT INFORMATION
  Report Type: Spontaneous
  Country: US (occurrence: US)
  Receive Date: 20230803
  Receipt Date: 20231211
  Transmission Date: 20240110
  Serious: No
  Sender: FDA-Public Use
  Company Number: US-GSKCCFUS-Case-01760995_AE-98963

PATIENT
  Sex: Female

DRUGS (1)
  1. BREO ELLIPTA [Suspect]
     Active Substance: FLUTICASONE FUROATE\VILANTEROL TRIFENATATE
     Indication: Product used for unknown indication
     Dosage: UNK, BREO ELLIPTA 100/25MCG 30D
     Route: 055

REACTIONS (4)
  - Asthma [Unknown]
  - Exposure during pregnancy [Unknown]
  - Product dose omission issue [Unknown]
  - Product complaint [Unknown]
